FAERS Safety Report 10223104 (Version 2)
Quarter: 2014Q3

REPORT INFORMATION
  Report Type: Report from Study
  Country: BR (occurrence: BR)
  Receive Date: 20140607
  Receipt Date: 20140812
  Transmission Date: 20150326
  Serious: Yes (Hospitalization, Other)
  Sender: FDA-Public Use
  Company Number: PHHY2014BR069660

PATIENT
  Age: 70 Year
  Sex: Male
  Weight: 66 kg

DRUGS (3)
  1. SIMVASTATIN. [Concomitant]
     Active Substance: SIMVASTATIN
     Indication: HYPERTENSION
     Dosage: 1 DF DAILY
     Route: 048
     Dates: start: 2002
  2. DIOVAN HCT [Suspect]
     Active Substance: HYDROCHLOROTHIAZIDE\VALSARTAN
     Indication: HYPERTENSION
     Dosage: 1 DF (160/12.5 MG), DAILY IN THE MORNING
     Route: 048
     Dates: start: 2002
  3. AAS [Concomitant]
     Active Substance: ASPIRIN
     Indication: ANTICOAGULANT THERAPY
     Dosage: 1 DF, DAILY
     Route: 048
     Dates: start: 2010

REACTIONS (4)
  - Type 2 diabetes mellitus [Not Recovered/Not Resolved]
  - Infarction [Recovered/Resolved]
  - Coronary artery occlusion [Unknown]
  - Chest pain [Unknown]

NARRATIVE: CASE EVENT DATE: 201401
